FAERS Safety Report 7525093-4 (Version None)
Quarter: 2011Q2

REPORT INFORMATION
  Report Type: 
  Country: None (occurrence: None)
  Receive Date: 20110606
  Receipt Date: 20110527
  Transmission Date: 20111010
  Serious: Yes (Other)
  Sender: FDA-Public Use
  Company Number: DK-BRISTOL-MYERS SQUIBB COMPANY-15785918

PATIENT
  Age: 17 Year
  Sex: Female

DRUGS (10)
  1. CYCLOPHOSPHAMIDE [Suspect]
     Indication: HODGKIN'S DISEASE
     Dates: start: 20060703, end: 20061003
  2. PREDNISONE [Suspect]
     Indication: HODGKIN'S DISEASE
     Route: 048
     Dates: start: 20060508, end: 20061010
  3. NATRIUMFLUORID [Concomitant]
  4. MESNA [Suspect]
     Indication: HODGKIN'S DISEASE
     Dates: start: 20060703, end: 20061003
  5. PROCARBAZINE HYDROCHLORIDE [Suspect]
     Indication: HODGKIN'S DISEASE
     Dosage: NATULANAR
     Route: 048
     Dates: start: 20060703, end: 20061010
  6. ADRIAMYCIN PFS [Suspect]
     Indication: HODGKIN'S DISEASE
     Route: 042
     Dates: start: 20060508, end: 20060619
  7. ETOPOSIDE [Suspect]
     Indication: HODGKIN'S DISEASE
     Route: 042
     Dates: start: 20060508, end: 20060609
  8. GLUCOSE [Concomitant]
     Dosage: GLUCOSE MONOHYDRATE
  9. POTASSIUM CHLORIDE [Concomitant]
  10. ONCOVIN [Suspect]
     Indication: HODGKIN'S DISEASE
     Route: 042
     Dates: start: 20060508, end: 20061003

REACTIONS (8)
  - INTERVERTEBRAL DISC PROTRUSION [None]
  - PAIN IN EXTREMITY [None]
  - LYMPHADENOPATHY [None]
  - PERTUSSIS [None]
  - ARTHRALGIA [None]
  - OSTEONECROSIS [None]
  - BACK PAIN [None]
  - FATIGUE [None]
